FAERS Safety Report 9187366 (Version 3)
Quarter: 2013Q4

REPORT INFORMATION
  Report Type: Spontaneous
  Country: IE (occurrence: IE)
  Receive Date: 20130325
  Receipt Date: 20131202
  Transmission Date: 20140711
  Serious: Yes (Hospitalization)
  Sender: FDA-Public Use
  Company Number: IE-ASTRAZENECA-2013SE18833

PATIENT
  Age: 184 Day
  Sex: Male
  Weight: 9.9 kg

DRUGS (5)
  1. SYNAGIS [Suspect]
     Indication: BRONCHOPULMONARY DYSPLASIA
     Route: 030
     Dates: start: 20121120, end: 20130313
  2. SYNAGIS [Suspect]
     Indication: PREMATURE BABY
     Route: 030
     Dates: start: 20121120, end: 20130313
  3. PROPANOLOL [Concomitant]
     Indication: AORTIC STENOSIS
     Dates: start: 20130206
  4. ABIDEC [Concomitant]
  5. FERINSOL [Concomitant]

REACTIONS (1)
  - Lower respiratory tract infection viral [Recovered/Resolved]
